FAERS Safety Report 6551870-2 (Version None)
Quarter: 2010Q1

REPORT INFORMATION
  Report Type: 
  Country: None (occurrence: None)
  Receive Date: 20100120
  Receipt Date: 20100107
  Transmission Date: 20100710
  Serious: Yes (Disabling, Other)
  Sender: FDA-Public Use
  Company Number: CAP10000024

PATIENT
  Age: 68 Year
  Sex: Female

DRUGS (2)
  1. ACTONEL [Suspect]
     Dosage: 1 DF, 1 WEEK, ORAL
     Route: 048
  2. LEVOTHYROXINE SODIUM [Concomitant]

REACTIONS (3)
  - CARDIOVASCULAR DISORDER [None]
  - COMPUTERISED TOMOGRAM ABNORMAL [None]
  - HEARING IMPAIRED [None]
